FAERS Safety Report 8515588-9 (Version None)
Quarter: 2012Q3

REPORT INFORMATION
  Report Type: 
  Country: None (occurrence: None)
  Receive Date: 20120717
  Receipt Date: 20120710
  Transmission Date: 20120928
  Serious: Yes (Hospitalization)
  Sender: FDA-Public Use
  Company Number: PHHY2011FR07302

PATIENT
  Age: 17 Year
  Sex: Female

DRUGS (3)
  1. PYRAZINAMIDE [Concomitant]
     Indication: TUBERCULOSIS
     Dosage: UNK
  2. ISONIAZID [Suspect]
     Indication: TUBERCULOSIS
  3. RIFAMPICIN [Concomitant]
     Indication: TUBERCULOSIS

REACTIONS (3)
  - HEPATITIS [None]
  - JAUNDICE [None]
  - ACUTE HEPATIC FAILURE [None]
